FAERS Safety Report 7561206-6 (Version None)
Quarter: 2011Q2

REPORT INFORMATION
  Report Type: 
  Country: None (occurrence: None)
  Receive Date: 20110621
  Receipt Date: 20110322
  Transmission Date: 20111010
  Serious: No
  Sender: FDA-Public Use
  Company Number: US-ASTRAZENECA-2011SE16654

PATIENT
  Age: 52 Year
  Sex: Female

DRUGS (4)
  1. CRESTOR [Suspect]
     Route: 048
  2. PULMICORT FLEXHALER [Suspect]
     Route: 055
  3. NEXIUM [Suspect]
     Route: 048
  4. TOPROL-XL [Suspect]
     Route: 048

REACTIONS (1)
  - HEART RATE INCREASED [None]
